FAERS Safety Report 8371495-6 (Version None)
Quarter: 2012Q2

REPORT INFORMATION
  Report Type: 
  Country: None (occurrence: None)
  Receive Date: 20120518
  Receipt Date: 20120507
  Transmission Date: 20120825
  Serious: No
  Sender: FDA-Public Use
  Company Number: US-ASTRAZENECA-2012SE29680

PATIENT
  Age: 82 Year
  Sex: Female

DRUGS (2)
  1. EYE DROPS [Suspect]
     Route: 047
  2. ARIMIDEX [Suspect]
     Route: 048

REACTIONS (2)
  - PAIN IN EXTREMITY [None]
  - ADVERSE DRUG REACTION [None]
